FAERS Safety Report 18554175 (Version 11)
Quarter: 2023Q1

REPORT INFORMATION
  Report Type: Report from Study
  Country: CO (occurrence: CO)
  Receive Date: 20201127
  Receipt Date: 20230331
  Transmission Date: 20230417
  Serious: Yes (Hospitalization, Disabling, Other)
  Sender: FDA-Public Use
  Company Number: CO-ABBVIE-20K-036-3612730-00

PATIENT
  Sex: Female
  Weight: 75 kg

DRUGS (2)
  1. HUMIRA [Suspect]
     Active Substance: ADALIMUMAB
     Indication: Colitis ulcerative
     Route: 058
     Dates: start: 20170725
  2. HUMIRA [Suspect]
     Active Substance: ADALIMUMAB

REACTIONS (22)
  - Ovarian cyst [Not Recovered/Not Resolved]
  - Skin disorder [Recovering/Resolving]
  - Gastrointestinal disorder [Not Recovered/Not Resolved]
  - Gastrointestinal necrosis [Not Recovered/Not Resolved]
  - Intestinal obstruction [Recovering/Resolving]
  - Hernia [Recovering/Resolving]
  - Abdominal pain [Recovered/Resolved]
  - Chills [Recovered/Resolved]
  - Pain [Recovering/Resolving]
  - Oral mucosal blistering [Not Recovered/Not Resolved]
  - Impaired healing [Recovering/Resolving]
  - Overweight [Recovering/Resolving]
  - Cyst [Recovering/Resolving]
  - Chills [Recovered/Resolved]
  - Gastrointestinal disorder [Recovering/Resolving]
  - Gastrointestinal disorder [Recovering/Resolving]
  - Blindness [Not Recovered/Not Resolved]
  - Nephrolithiasis [Not Recovered/Not Resolved]
  - Influenza like illness [Recovered/Resolved]
  - Hypokinesia [Recovering/Resolving]
  - Colitis ulcerative [Unknown]
  - Discomfort [Unknown]

NARRATIVE: CASE EVENT DATE: 20200101
